FAERS Safety Report 8233899-1 (Version None)
Quarter: 2012Q1

REPORT INFORMATION
  Report Type: 
  Country: None (occurrence: None)
  Receive Date: 20120326
  Receipt Date: 20120314
  Transmission Date: 20120608
  Serious: Yes (Death, Hospitalization)
  Sender: FDA-Public Use
  Company Number: JP-NOVOPROD-347189

PATIENT
  Age: 59 Year
  Sex: Male
  Weight: 84 kg

DRUGS (11)
  1. VICTOZA [Suspect]
     Dosage: 0.6 MG, QD
     Route: 058
     Dates: start: 20110316, end: 20111018
  2. VICTOZA [Suspect]
     Indication: TYPE 2 DIABETES MELLITUS
     Dosage: 0.3 MG, QD
     Route: 058
     Dates: start: 20110309
  3. PLETAL [Concomitant]
     Indication: THROMBOANGIITIS OBLITERANS
     Dosage: 400 MG, QD
     Route: 048
  4. ERYTHROCIN                         /00020904/ [Concomitant]
     Indication: DIFFUSE PANBRONCHIOLITIS
     Dosage: 400 G, QD
     Route: 048
     Dates: start: 20100331
  5. MUCOSOLVAN L [Concomitant]
     Indication: DIFFUSE PANBRONCHIOLITIS
     Dosage: /PO
     Route: 048
     Dates: start: 20100331
  6. RHYTHMY [Concomitant]
     Indication: INSOMNIA
     Dosage: /PO
     Route: 048
     Dates: end: 20110315
  7. LANSOPRAZOLE [Concomitant]
     Indication: GASTRIC ULCER
     Dosage: 15 MG, QD
     Route: 048
  8. CRESTOR [Concomitant]
     Indication: HYPERLIPIDAEMIA
     Dosage: 2.5 MG, QD
     Route: 048
     Dates: start: 20090430
  9. LENDORMIN [Concomitant]
     Indication: INSOMNIA
     Dosage: /PO
     Route: 048
     Dates: start: 20110316
  10. MOTILIUM [Concomitant]
     Indication: GASTRIC ULCER
     Dosage: 30 G, QD
     Route: 048
  11. PRORENAL [Concomitant]
     Indication: THROMBOANGIITIS OBLITERANS
     Dosage: 90 MICROG, QD
     Route: 048

REACTIONS (1)
  - PULMONARY VENOUS THROMBOSIS [None]
